FAERS Safety Report 12627118 (Version 1)
Quarter: 2016Q3

REPORT INFORMATION
  Report Type: Spontaneous
  Country: FR (occurrence: FR)
  Receive Date: 20160805
  Receipt Date: 20160805
  Transmission Date: 20161109
  Serious: Yes (Hospitalization, Other)
  Sender: FDA-Public Use
  Company Number: FR-PFIZER INC-2016373804

PATIENT
  Age: 63 Year
  Sex: Male

DRUGS (6)
  1. IMETH [Suspect]
     Active Substance: METHOTREXATE SODIUM
     Indication: PEMPHIGUS
     Dosage: 10 MG, WEEKLY
     Route: 048
     Dates: start: 20131210, end: 20160517
  2. FOLIC ACID. [Concomitant]
     Active Substance: FOLIC ACID
     Dosage: 5 MG, WEEKLY
  3. PRAVASTATIN. [Concomitant]
     Active Substance: PRAVASTATIN
     Dosage: 40 MG, DAILY
  4. DULOXETINE. [Concomitant]
     Active Substance: DULOXETINE
     Dosage: 60 MG, DAILY
  5. DISULONE [Concomitant]
     Active Substance: DAPSONE\FERROUS OXALATE
     Dosage: 150 MG, DAILY
     Dates: end: 201602
  6. CORTANCYL [Concomitant]
     Active Substance: PREDNISONE
     Dosage: 6 MG, 1X/DAY
     Dates: start: 2005

REACTIONS (3)
  - Anaemia macrocytic [Recovering/Resolving]
  - Product use issue [Unknown]
  - Aplastic anaemia [Recovering/Resolving]

NARRATIVE: CASE EVENT DATE: 20160517
